FAERS Safety Report 10219976 (Version 1)
Quarter: 2014Q2

REPORT INFORMATION
  Report Type: Spontaneous
  Country: CA (occurrence: CA)
  Receive Date: 20140605
  Receipt Date: 20140605
  Transmission Date: 20141212
  Serious: Yes (Disabling)
  Sender: FDA-Public Use
  Company Number: CA-B.I. PHARMACEUTICALS,INC./RIDGEFIELD-2014-BI-24515CN

PATIENT
  Age: 54 Year
  Sex: Male

DRUGS (2)
  1. MICARDIS [Suspect]
     Indication: PRODUCT USED FOR UNKNOWN INDICATION
     Dosage: 80 MG
     Route: 048
  2. METOPROLOL [Concomitant]
     Dosage: 100 MG
     Route: 065

REACTIONS (3)
  - Gait disturbance [Recovered/Resolved]
  - Tendon disorder [Recovered/Resolved]
  - Pain in extremity [Recovered/Resolved]
